FAERS Safety Report 4736984-1 (Version None)
Quarter: 2005Q3

REPORT INFORMATION
  Report Type: 
  Country: None (occurrence: None)
  Receive Date: 20050803
  Receipt Date: 20050718
  Transmission Date: 20060218
  Serious: Yes (Hospitalization)
  Sender: FDA-Public Use
  Company Number: CIO05012376

PATIENT
  Age: 46 Year
  Sex: Female
  Weight: 58.1 kg

DRUGS (2)
  1. PEPTO-BISMOL MAXIMUM STRENGTH, ORIGINAL FLAVOR(BISMUTH SALICYLATE 525 [Suspect]
     Indication: NAUSEA
     Dosage: 10 ML, EVERY 4 HR FOR 3 DAYS, ORAL
     Route: 048
     Dates: start: 20050625, end: 20050627
  2. UNSPECIFIED OVER THE COUNTER MEDICINE [Concomitant]

REACTIONS (10)
  - CONDITION AGGRAVATED [None]
  - DEHYDRATION [None]
  - DIARRHOEA [None]
  - DISEASE RECURRENCE [None]
  - FEAR [None]
  - GASTRITIS [None]
  - GASTROOESOPHAGEAL REFLUX DISEASE [None]
  - SELF-MEDICATION [None]
  - ULCER [None]
  - WHITE BLOOD CELL COUNT DECREASED [None]
